FAERS Safety Report 21016080 (Version 5)
Quarter: 2022Q4

REPORT INFORMATION
  Report Type: Report from Study
  Country: US (occurrence: US)
  Receive Date: 20220628
  Receipt Date: 20221019
  Transmission Date: 20230113
  Serious: No
  Sender: FDA-Public Use
  Company Number: US-NOVARTISTESTPH-NVSC2022US147455

PATIENT
  Sex: Female

DRUGS (1)
  1. COSENTYX [Suspect]
     Active Substance: SECUKINUMAB
     Indication: Ankylosing spondylitis
     Dosage: 150 MG, QW (X5 WKS)
     Route: 065

REACTIONS (4)
  - COVID-19 [Unknown]
  - Spinal disorder [Unknown]
  - Pain [Not Recovered/Not Resolved]
  - Injury [Unknown]
